FAERS Safety Report 9642704 (Version 2)
Quarter: 2013Q4

REPORT INFORMATION
  Report Type: Spontaneous
  Country: JP (occurrence: JP)
  Receive Date: 20131024
  Receipt Date: 20131031
  Transmission Date: 20140711
  Serious: Yes (Hospitalization)
  Sender: FDA-Public Use
  Company Number: JP-009507513-1310JPN008045

PATIENT
  Age: 85 Year
  Sex: Male

DRUGS (1)
  1. PREMINENT TABLETS [Suspect]
     Dosage: DAILY DOSAGE UNKNOWN
     Route: 048

REACTIONS (3)
  - Extradural haematoma [Unknown]
  - Fall [Unknown]
  - Dizziness [Unknown]
